FAERS Safety Report 21832898 (Version 1)
Quarter: 2023Q1

REPORT INFORMATION
  Report Type: Spontaneous
  Country: US (occurrence: US)
  Receive Date: 20230106
  Receipt Date: 20230106
  Transmission Date: 20230418
  Serious: No
  Sender: FDA-Public Use
  Company Number: US-ALLERGAN-2238831US

PATIENT
  Age: 76 Year
  Sex: Female

DRUGS (2)
  1. QULIPTA [Suspect]
     Active Substance: ATOGEPANT
     Indication: Hemiplegic migraine
     Dosage: UNK
     Dates: start: 20221107
  2. QULIPTA [Suspect]
     Active Substance: ATOGEPANT
     Dosage: UNK

REACTIONS (11)
  - Pseudostroke [Recovering/Resolving]
  - Off label use [Unknown]
  - Motor dysfunction [Unknown]
  - Facial paralysis [Unknown]
  - Eye disorder [Unknown]
  - Viral infection [Unknown]
  - Hemiplegia [Unknown]
  - Loss of personal independence in daily activities [Unknown]
  - Illness [Unknown]
  - Migraine [Unknown]
  - Drug ineffective for unapproved indication [Unknown]

NARRATIVE: CASE EVENT DATE: 20221101
